FAERS Safety Report 4614007-2 (Version None)
Quarter: 2005Q1

REPORT INFORMATION
  Report Type: 
  Country: None (occurrence: None)
  Receive Date: 20050321
  Receipt Date: 20050310
  Transmission Date: 20050727
  Serious: Yes (Life-Threatening)
  Sender: FDA-Public Use
  Company Number: IT-ROCHE-397964

PATIENT
  Age: 12 Year
  Sex: Female

DRUGS (1)
  1. ROCEPHIN [Suspect]
     Indication: APPENDICITIS
     Dosage: FORM REPORTED AS VIAL.
     Route: 042
     Dates: start: 20050228, end: 20050228

REACTIONS (3)
  - CHEST DISCOMFORT [None]
  - FEELING HOT [None]
  - PRURITUS [None]
